FAERS Safety Report 9466560 (Version 2)
Quarter: 2013Q3

REPORT INFORMATION
  Report Type: Report from Study
  Country: PR (occurrence: US)
  Receive Date: 20130820
  Receipt Date: 20130820
  Transmission Date: 20140515
  Serious: Yes (Life-Threatening, Hospitalization)
  Sender: FDA-Public Use
  Company Number: PR-ACTELION-A-US2013-86436

PATIENT
  Age: 90 Year
  Sex: Male

DRUGS (2)
  1. TRACLEER [Suspect]
     Indication: PULMONARY ARTERIAL HYPERTENSION
     Dosage: 125 MG, BID
     Route: 048
  2. TRACLEER [Suspect]
     Dosage: 62.5 MG, BID
     Route: 048
     Dates: start: 201101

REACTIONS (3)
  - Acute coronary syndrome [Recovering/Resolving]
  - Diabetes mellitus [Not Recovered/Not Resolved]
  - Fluid retention [Not Recovered/Not Resolved]
